FAERS Safety Report 20937908 (Version 2)
Quarter: 2022Q2

REPORT INFORMATION
  Report Type: Spontaneous
  Country: SG (occurrence: None)
  Receive Date: 20220609
  Receipt Date: 20220624
  Transmission Date: 20220721
  Serious: Yes (Hospitalization)
  Sender: FDA-Public Use
  Company Number: 2022A204640

PATIENT
  Age: 55 Year
  Sex: Male

DRUGS (9)
  1. TICAGRELOR [Suspect]
     Active Substance: TICAGRELOR
     Indication: Orthopnoea
     Route: 048
     Dates: start: 20220526
  2. AZD-5718 [Suspect]
     Active Substance: AZD-5718
     Indication: Arteriosclerosis
     Route: 048
     Dates: start: 20220614
  3. OMEPRAZOLE [Concomitant]
     Active Substance: OMEPRAZOLE
     Indication: Orthopnoea
     Route: 065
     Dates: start: 20220526
  4. FUROSEMIDE [Concomitant]
     Active Substance: FUROSEMIDE
     Indication: Orthopnoea
     Route: 065
     Dates: start: 20220526
  5. SPIRONOLACTONE [Concomitant]
     Active Substance: SPIRONOLACTONE
     Indication: Orthopnoea
     Route: 065
     Dates: start: 20220526
  6. LISINOPRIL [Concomitant]
     Active Substance: LISINOPRIL
     Indication: Orthopnoea
     Route: 065
     Dates: start: 20220526
  7. ATORVASTATIN [Concomitant]
     Active Substance: ATORVASTATIN
     Indication: Orthopnoea
     Route: 065
     Dates: start: 20220526
  8. ASPIRIN [Concomitant]
     Active Substance: ASPIRIN
     Indication: Orthopnoea
     Route: 065
     Dates: start: 20220526
  9. BISOPROLOL [Concomitant]
     Active Substance: BISOPROLOL
     Indication: Orthopnoea
     Route: 065
     Dates: start: 20220526

REACTIONS (1)
  - Orthopnoea [Recovered/Resolved]

NARRATIVE: CASE EVENT DATE: 20220529
